FAERS Safety Report 11776526 (Version 1)
Quarter: 2015Q4

REPORT INFORMATION
  Report Type: Report from Study
  Country: US (occurrence: US)
  Receive Date: 20151125
  Receipt Date: 20151125
  Transmission Date: 20160304
  Serious: Yes (Hospitalization)
  Sender: FDA-Public Use
  Company Number: US-ABBVIE-15K-163-1503421-00

PATIENT
  Age: 43 Year
  Sex: Male
  Weight: 108.51 kg

DRUGS (1)
  1. HUMIRA [Suspect]
     Active Substance: ADALIMUMAB
     Indication: COLITIS ULCERATIVE
     Route: 058
     Dates: start: 2014

REACTIONS (6)
  - Diarrhoea [Unknown]
  - Drug effect decreased [Unknown]
  - Gastric mucosal hypertrophy [Unknown]
  - Anorectal disorder [Unknown]
  - Clostridium difficile infection [Recovered/Resolved]
  - Abdominal pain [Unknown]

NARRATIVE: CASE EVENT DATE: 201510
